FAERS Safety Report 5897212-7 (Version None)
Quarter: 2008Q3

REPORT INFORMATION
  Report Type: 
  Country: None (occurrence: None)
  Receive Date: 20080923
  Receipt Date: 20080908
  Transmission Date: 20090109
  Serious: Yes (Death)
  Sender: FDA-Public Use
  Company Number: KADN20080342

PATIENT
  Sex: Female

DRUGS (3)
  1. MORPHINE [Suspect]
     Dosage: ORAL
     Route: 048
     Dates: end: 20050101
  2. AMITRIPTYLINE HCL [Suspect]
     Dosage: ORAL
     Route: 048
     Dates: end: 20050101
  3. CARBARYL [Suspect]
     Dates: end: 20050101

REACTIONS (7)
  - ARRHYTHMIA [None]
  - CARDIO-RESPIRATORY ARREST [None]
  - CARDIOTOXICITY [None]
  - COMPLETED SUICIDE [None]
  - DEPRESSION SUICIDAL [None]
  - ELECTROMECHANICAL DISSOCIATION [None]
  - MULTIPLE DRUG OVERDOSE INTENTIONAL [None]
